FAERS Safety Report 20595498 (Version 1)
Quarter: 2022Q1

REPORT INFORMATION
  Report Type: Spontaneous
  Country: ES (occurrence: ES)
  Receive Date: 20220315
  Receipt Date: 20220315
  Transmission Date: 20220423
  Serious: Yes (Other)
  Sender: FDA-Public Use
  Company Number: None

PATIENT
  Age: 65 Year
  Sex: Female
  Weight: 76 kg

DRUGS (1)
  1. PACLITAXEL [Suspect]
     Active Substance: PACLITAXEL
     Indication: Ovarian cancer
     Dosage: 6 MG/ML, N EFG, 1 VIAL OF 50 ML, 175 MG/M2
     Route: 041
     Dates: start: 20220204, end: 20220204

REACTIONS (4)
  - Hypoxia [Recovered/Resolved]
  - Mydriasis [Recovered/Resolved]
  - Loss of consciousness [Recovered/Resolved]
  - Hypersensitivity [Recovered/Resolved]

NARRATIVE: CASE EVENT DATE: 20220204
